FAERS Safety Report 15440784 (Version 1)
Quarter: 2018Q3

REPORT INFORMATION
  Report Type: Spontaneous
  Country: US (occurrence: US)
  Receive Date: 20180925
  Receipt Date: 20180925
  Transmission Date: 20181010
  Serious: Yes (Disabling, Other)
  Sender: FDA-Public Use
  Company Number: None

PATIENT
  Age: 41 Year
  Sex: Female
  Weight: 101.25 kg

DRUGS (1)
  1. ALPRAZOLAM. [Suspect]
     Active Substance: ALPRAZOLAM
     Indication: PANIC DISORDER
     Route: 048

REACTIONS (4)
  - Cerebral disorder [None]
  - Affective disorder [None]
  - Personality change [None]
  - Abnormal behaviour [None]

NARRATIVE: CASE EVENT DATE: 20080909
